FAERS Safety Report 8885754 (Version 3)
Quarter: 2014Q2

REPORT INFORMATION
  Report Type: Report from Study
  Country: US (occurrence: US)
  Receive Date: 20121101
  Receipt Date: 20131018
  Transmission Date: 20141212
  Serious: Yes (Hospitalization, Other)
  Sender: FDA-Public Use
  Company Number: US-PFIZER INC-2012269849

PATIENT
  Age: 9 Year
  Sex: Female

DRUGS (6)
  1. CYTARABINE [Suspect]
     Indication: ACUTE LYMPHOCYTIC LEUKAEMIA
     Dosage: 1 DOSAGE FORM TOTAL
     Route: 042
     Dates: start: 20120829, end: 20120901
  2. CYTARABINE [Suspect]
     Dosage: 1840 (UNIT NOT SPECIFIED)
     Route: 042
     Dates: start: 20120928, end: 20120929
  3. DASATINIB [Suspect]
     Indication: ACUTE LYMPHOCYTIC LEUKAEMIA
     Dosage: 60 MG, 1 DAY
     Route: 048
     Dates: start: 20120627, end: 20120724
  4. DASATINIB [Suspect]
     Dosage: 55 MG
     Route: 048
     Dates: start: 20120725, end: 20120813
  5. DASATINIB [Suspect]
     Dosage: 55 MG
     Route: 048
     Dates: start: 20120815
  6. CYTOXAN [Suspect]
     Indication: ACUTE LYMPHOCYTIC LEUKAEMIA
     Dosage: UNK
     Dates: start: 20120904, end: 20120904

REACTIONS (4)
  - Febrile neutropenia [Recovered/Resolved]
  - Sepsis [Recovered/Resolved]
  - Device related infection [Recovered/Resolved]
  - Sepsis [Recovered/Resolved]
